FAERS Safety Report 7860051-1 (Version None)
Quarter: 2011Q4

REPORT INFORMATION
  Report Type: 
  Country: None (occurrence: None)
  Receive Date: 20111025
  Receipt Date: 20111013
  Transmission Date: 20120403
  Serious: Yes (Other)
  Sender: FDA-Public Use
  Company Number: DE-1184036

PATIENT
  Sex: Female

DRUGS (3)
  1. POLYSPECTRAN OPHTHALMIC SOLUTION (POLYSPECTRAN) [Suspect]
     Route: 047
     Dates: start: 20101102
  2. VIGAMOX [Suspect]
     Route: 047
     Dates: start: 20101001
  3. DEXA GENTAMICIN [Concomitant]

REACTIONS (2)
  - LENTICULAR OPACITIES [None]
  - CORNEAL ABRASION [None]
